FAERS Safety Report 14374686 (Version 1)
Quarter: 2018Q1

REPORT INFORMATION
  Report Type: Spontaneous
  Country: US (occurrence: US)
  Receive Date: 20180111
  Receipt Date: 20180111
  Transmission Date: 20180509
  Serious: No
  Sender: FDA-Public Use
  Company Number: US-BAYER-2018-004997

PATIENT

DRUGS (1)
  1. MIRALAX [Suspect]
     Active Substance: POLYETHYLENE GLYCOL 3350
     Indication: INTESTINAL OBSTRUCTION
     Dosage: UNK
     Route: 065

REACTIONS (4)
  - Therapeutic response unexpected [Unknown]
  - Product use in unapproved indication [Unknown]
  - Drug administration error [None]
  - Off label use [Unknown]
